FAERS Safety Report 8505854-5 (Version None)
Quarter: 2012Q3

REPORT INFORMATION
  Report Type: 
  Country: None (occurrence: None)
  Receive Date: 20120712
  Receipt Date: 20120705
  Transmission Date: 20120928
  Serious: Yes (Hospitalization)
  Sender: FDA-Public Use
  Company Number: IL-B.I. PHARMACEUTICALS,INC./RIDGEFIELD-2012-AP-00482RI

PATIENT
  Age: 82 Year
  Sex: Female

DRUGS (6)
  1. PRADAXA [Suspect]
     Indication: ATRIAL FIBRILLATION
     Dosage: 220 MG
     Route: 048
  2. ALDACTONE [Concomitant]
  3. PROSCAR [Concomitant]
  4. PRAVASTATIN [Concomitant]
  5. FUROSEMIDE [Concomitant]
  6. VITAMIN E [Concomitant]

REACTIONS (4)
  - HEPATIC ENZYME INCREASED [None]
  - RENAL IMPAIRMENT [None]
  - CARDIAC FAILURE [None]
  - AORTIC STENOSIS [None]
